FAERS Safety Report 23522702 (Version 1)
Quarter: 2024Q1

REPORT INFORMATION
  Report Type: Spontaneous
  Country: US (occurrence: US)
  Receive Date: 20240214
  Receipt Date: 20240214
  Transmission Date: 20240410
  Serious: Yes (Hospitalization, Other)
  Sender: FDA-Public Use
  Company Number: US-SANOFI-01934339

PATIENT
  Age: 60 Year
  Sex: Male

DRUGS (11)
  1. MULTAQ [Suspect]
     Active Substance: DRONEDARONE
     Dosage: 200 MG, BID
  2. BUPRENORPHINE [Concomitant]
     Active Substance: BUPRENORPHINE
     Dosage: UNK
     Route: 062
  3. PANTOPRAZOLE [Concomitant]
     Active Substance: PANTOPRAZOLE
     Dosage: 40 MG, BID
  4. METOPROLOL SUCCINATE [Concomitant]
     Active Substance: METOPROLOL SUCCINATE
     Dosage: 50 MG, BID
  5. SEVELAMER [Concomitant]
     Active Substance: SEVELAMER
     Dosage: UNK
  6. METOPROLOL TARTRATE [Concomitant]
     Active Substance: METOPROLOL TARTRATE
     Dosage: UNK, TID
  7. METOPROLOL TARTRATE [Concomitant]
     Active Substance: METOPROLOL TARTRATE
     Dosage: UNK UNK, QID
  8. DILTIAZEM [Concomitant]
     Active Substance: DILTIAZEM
     Dosage: UNK
  9. DIGOXIN [Concomitant]
     Active Substance: DIGOXIN
     Dosage: UNK
  10. METOPROLOL [Concomitant]
     Active Substance: METOPROLOL
     Dosage: UNK
  11. ENTRESTO [Concomitant]
     Active Substance: SACUBITRIL\VALSARTAN
     Dosage: UNK

REACTIONS (11)
  - B-cell lymphoma [Unknown]
  - Neurogenic bladder [Unknown]
  - Pleural effusion [Unknown]
  - Lung disorder [Unknown]
  - Gastric ulcer [Unknown]
  - Cardiac disorder [Unknown]
  - Sensory loss [Unknown]
  - Walking aid user [Unknown]
  - Sleep apnoea syndrome [Unknown]
  - Heart rate decreased [Unknown]
  - Incorrect dose administered [Unknown]
